FAERS Safety Report 18115342 (Version 1)
Quarter: 2020Q3

REPORT INFORMATION
  Report Type: Spontaneous
  Country: GB (occurrence: GB)
  Receive Date: 20200805
  Receipt Date: 20200805
  Transmission Date: 20201103
  Serious: Yes (Other)
  Sender: FDA-Public Use
  Company Number: GB-PFIZER INC-2020293614

PATIENT
  Age: 39 Year
  Sex: Female
  Weight: 70 kg

DRUGS (6)
  1. PROPRANOLOL HYDROCHLORIDE. [Concomitant]
     Active Substance: PROPRANOLOL HYDROCHLORIDE
     Dosage: UNK
  2. AMLODIPINE BESILATE [Suspect]
     Active Substance: AMLODIPINE BESYLATE
     Indication: HYPERTENSION
     Dosage: 5 MG
     Route: 048
     Dates: start: 20200613, end: 20200716
  3. AMOXICILLIN. [Concomitant]
     Active Substance: AMOXICILLIN
     Dosage: UNK
  4. AMOXICILLIN CLAVULANIC ACID [Suspect]
     Active Substance: AMOXICILLIN\CLAVULANIC ACID
     Indication: SINUSITIS
     Dosage: 1875 MG, 1X/DAY
     Route: 048
     Dates: start: 20200613, end: 20200615
  5. SYMBICORT [Concomitant]
     Active Substance: BUDESONIDE\FORMOTEROL FUMARATE DIHYDRATE
     Dosage: UNK
  6. VENTOLIN [Concomitant]
     Active Substance: ALBUTEROL SULFATE
     Dosage: UNK

REACTIONS (6)
  - Burning sensation [Recovered/Resolved with Sequelae]
  - Gastric ulcer [Not Recovered/Not Resolved]
  - Mental impairment [Recovered/Resolved]
  - Hyperhidrosis [Unknown]
  - Chest pain [Recovering/Resolving]
  - Panic reaction [Unknown]

NARRATIVE: CASE EVENT DATE: 2020
